FAERS Safety Report 6080538-4 (Version None)
Quarter: 2009Q1

REPORT INFORMATION
  Report Type: 
  Country: None (occurrence: None)
  Receive Date: 20090217
  Receipt Date: 20090211
  Transmission Date: 20090719
  Serious: Yes (Death)
  Sender: FDA-Public Use
  Company Number: A0768714A

PATIENT
  Age: 62 Year
  Sex: Female
  Weight: 35 kg

DRUGS (18)
  1. SERETIDE [Suspect]
     Indication: CHRONIC OBSTRUCTIVE PULMONARY DISEASE
     Dosage: 1PUFF TWICE PER DAY
     Route: 065
     Dates: start: 20090119, end: 20090203
  2. FLUIMUCIL [Concomitant]
     Dates: start: 20070101, end: 20090203
  3. DIGESAN [Concomitant]
     Dates: start: 20070101, end: 20090203
  4. ENALAPRIL [Concomitant]
     Dates: start: 20070101, end: 20090101
  5. NOVALGINA [Concomitant]
     Dosage: 30DROP AS REQUIRED
  6. TYLENOL [Concomitant]
     Dosage: 35DROP AS REQUIRED
  7. DISGREN [Concomitant]
     Dosage: 300MG PER DAY
     Dates: end: 20080203
  8. PANAX GINSENG [Concomitant]
     Dates: start: 20070101, end: 20090203
  9. SENNA(SPECIES OF CASSIA) [Concomitant]
     Dosage: 1SP PER DAY
     Dates: start: 20080203, end: 20090203
  10. TAMARIND [Concomitant]
     Dosage: 1SP PER DAY
     Dates: start: 20080203, end: 20090203
  11. LICORICE [Concomitant]
     Dosage: 1SP PER DAY
     Dates: start: 20080203, end: 20090203
  12. ATROVENT [Concomitant]
  13. PENTOXIFYLLINE [Concomitant]
     Dates: start: 20070101, end: 20090203
  14. BEROTEC [Concomitant]
     Dosage: 4DROP TWICE PER DAY
  15. OMEPRAZOLE [Concomitant]
     Dosage: 20MG TWICE PER DAY
     Dates: start: 20070101, end: 20090203
  16. BRONDILAT [Concomitant]
     Dates: start: 20070101, end: 20090203
  17. VITAMIN B-12 [Concomitant]
     Dates: start: 20080103, end: 20090203
  18. CORIANDER [Concomitant]
     Dosage: 1SP PER DAY
     Dates: start: 20080203, end: 20090203

REACTIONS (1)
  - RESPIRATORY FAILURE [None]
